FAERS Safety Report 17508105 (Version 12)
Quarter: 2021Q2

REPORT INFORMATION
  Report Type: Report from Study
  Country: US (occurrence: US)
  Receive Date: 20200305
  Receipt Date: 20210623
  Transmission Date: 20210716
  Serious: Yes (Hospitalization, Other)
  Sender: FDA-Public Use
  Company Number: US-SHIRE-US202008516

PATIENT
  Age: 71 Year
  Sex: Female
  Weight: 97 kg

DRUGS (31)
  1. MIRAPEX [Concomitant]
     Active Substance: PRAMIPEXOLE DIHYDROCHLORIDE
     Route: 065
  2. DEXILANT [Concomitant]
     Active Substance: DEXLANSOPRAZOLE
     Route: 065
  3. VITAMIN D3 [Concomitant]
     Active Substance: CHOLECALCIFEROL
  4. VASCULERA [Concomitant]
     Active Substance: MEDICAL FOOD
  5. CUVITRU [Suspect]
     Active Substance: HUMAN IMMUNOGLOBULIN G
     Indication: CONGENITAL HYPOGAMMAGLOBULINAEMIA
     Dosage: 8 GRAM, 1/WEEK
     Route: 058
     Dates: start: 20170504
  6. ASPIRIN [ACETYLSALICYLIC ACID] [Concomitant]
     Active Substance: ASPIRIN
     Route: 065
  7. DIPHENHYDRAMINE. [Concomitant]
     Active Substance: DIPHENHYDRAMINE
     Route: 065
  8. CRESTOR [Concomitant]
     Active Substance: ROSUVASTATIN CALCIUM
     Route: 065
  9. TOPAMAX [Concomitant]
     Active Substance: TOPIRAMATE
     Route: 065
  10. AZELASTINE;FLUTICASONE [Concomitant]
     Active Substance: AZELASTINE HYDROCHLORIDE\FLUTICASONE PROPIONATE
     Route: 065
  11. AFRIN [OXYMETAZOLINE] [Concomitant]
     Route: 065
  12. DOCUSATE [Concomitant]
     Active Substance: DOCUSATE
     Route: 065
  13. OZEMPIC [Concomitant]
     Active Substance: SEMAGLUTIDE
  14. LORAZEPAM. [Concomitant]
     Active Substance: LORAZEPAM
  15. TIZANIDINE. [Concomitant]
     Active Substance: TIZANIDINE
     Route: 065
  16. PREDNISONE. [Concomitant]
     Active Substance: PREDNISONE
     Route: 065
  17. ACETAMINOPHEN. [Concomitant]
     Active Substance: ACETAMINOPHEN
     Route: 065
  18. LIDOCAINE. [Concomitant]
     Active Substance: LIDOCAINE
     Route: 065
  19. FLAXSEED [Concomitant]
     Active Substance: FLAX SEED
     Route: 065
  20. DOXYCYCLINE. [Concomitant]
     Active Substance: DOXYCYCLINE
     Dosage: 100 MILLIGRAM, BID
     Route: 065
  21. AMOXICILLIN. [Concomitant]
     Active Substance: AMOXICILLIN
  22. FLUOXETINE [Concomitant]
     Active Substance: FLUOXETINE HYDROCHLORIDE
  23. ACTEMRA [Concomitant]
     Active Substance: TOCILIZUMAB
     Route: 065
  24. EZETIMIBE. [Concomitant]
     Active Substance: EZETIMIBE
  25. LINZESS [Concomitant]
     Active Substance: LINACLOTIDE
  26. CUVITRU [Suspect]
     Active Substance: HUMAN IMMUNOGLOBULIN G
     Indication: IMMUNODEFICIENCY COMMON VARIABLE
     Dosage: 6 GRAM, 1/WEEK
     Route: 058
     Dates: start: 20170504
  27. EPINEPHRINE. [Concomitant]
     Active Substance: EPINEPHRINE
     Route: 065
  28. ZETIA [Concomitant]
     Active Substance: EZETIMIBE
     Route: 065
  29. ROSUVASTATIN. [Concomitant]
     Active Substance: ROSUVASTATIN
  30. FLONASE [MOMETASONE FUROATE] [Concomitant]
     Active Substance: MOMETASONE FUROATE
     Route: 065
  31. LEVOCETIRIZINE [Concomitant]
     Active Substance: LEVOCETIRIZINE
     Route: 065

REACTIONS (16)
  - Ataxia [Unknown]
  - Headache [Unknown]
  - Eye contusion [Unknown]
  - Polyneuropathy [Unknown]
  - Neuropathy peripheral [Unknown]
  - Ear infection [Unknown]
  - Urinary tract infection [Unknown]
  - Transient ischaemic attack [Recovering/Resolving]
  - Fall [Unknown]
  - Autoimmune thyroiditis [Unknown]
  - Injection site mass [Recovering/Resolving]
  - Injection site bruising [Unknown]
  - Ear congestion [Unknown]
  - Infusion site pain [Recovered/Resolved]
  - Head injury [Unknown]
  - Sinusitis [Unknown]

NARRATIVE: CASE EVENT DATE: 20200408
